FAERS Safety Report 5105989-3 (Version None)
Quarter: 2006Q3

REPORT INFORMATION
  Report Type: 
  Country: None (occurrence: None)
  Receive Date: 20060912
  Receipt Date: 20060904
  Transmission Date: 20061208
  Serious: No
  Sender: FDA-Public Use
  Company Number: B0437022A

PATIENT
  Age: 57 Year
  Sex: Male

DRUGS (18)
  1. RETROVIR [Suspect]
     Indication: HIV INFECTION
     Dates: start: 19890101
  2. EPIVIR [Suspect]
     Indication: HIV INFECTION
     Dates: start: 19960101
  3. ZIDOVUDINE + DIDANOSINE (ZIDOVUDINE + DIDANOSINE) [Suspect]
     Indication: HIV INFECTION
  4. ZIAGEN [Suspect]
     Indication: HIV INFECTION
     Dates: start: 20020301
  5. NEVIRAPINE [Suspect]
     Indication: HIV INFECTION
     Dates: start: 19960101
  6. SAQUINAVIR  (SAQUINAVIR) [Suspect]
     Indication: HIV INFECTION
     Dates: start: 19960101
  7. NELFINAVIR MESYLATE (NELFINAVIR MESYLATE) [Suspect]
     Indication: HIV INFECTION
  8. STAVUDINE [Suspect]
     Indication: HIV INFECTION
     Dates: start: 19960101
  9. DIDANOSINE [Suspect]
     Indication: HIV INFECTION
     Dates: start: 20000101
  10. TENOFOVIR (TENOFOVIR) [Suspect]
     Indication: HIV INFECTION
     Dates: start: 20020301
  11. LOPINAVIR + RITONAVIR (LOPINAVIR + RITONAVIR) [Suspect]
     Indication: HIV INFECTION
     Dates: start: 20020301
  12. INDINAVIR SULFATE (INDINAVIR SULFATE (INDINAVIR SULFATE) [Suspect]
     Indication: HIV INFECTION
     Dates: start: 20000101
  13. RITONAVIR (RITONAVIR) [Suspect]
     Indication: HIV INFECTION
     Dates: start: 20000101
  14. CO-TRIMOXAZOLE [Concomitant]
  15. PREDNISONE TAB [Concomitant]
  16. ATORVASTATIN CALCIUM [Concomitant]
  17. ROSUVASTATIN CALCIUM [Concomitant]
  18. ROSIGLITAZONE MALEATE [Concomitant]

REACTIONS (14)
  - BODY FAT DISORDER [None]
  - DIABETES MELLITUS NON-INSULIN-DEPENDENT [None]
  - DRUG TOXICITY [None]
  - FALL [None]
  - FAT ATROPHY [None]
  - FAT TISSUE INCREASED [None]
  - FATIGUE [None]
  - HIP ARTHROPLASTY [None]
  - HYPERTRIGLYCERIDAEMIA [None]
  - METABOLIC DISORDER [None]
  - OSTEONECROSIS [None]
  - PNEUMOCYSTIS JIROVECI PNEUMONIA [None]
  - RIB FRACTURE [None]
  - THERAPY NON-RESPONDER [None]
